FAERS Safety Report 10269576 (Version 1)
Quarter: 2014Q2

REPORT INFORMATION
  Report Type: Spontaneous
  Country: GB (occurrence: None)
  Receive Date: 20140620
  Receipt Date: 20140620
  Transmission Date: 20141212
  Serious: Yes (Life-Threatening, Hospitalization)
  Sender: FDA-Public Use
  Company Number: HAPL-002-14-GB

PATIENT
  Age: 57 Year
  Sex: Male

DRUGS (9)
  1. HUMAN NORMAL IMMUNOGLOBULIN (IV) (TRADENAME UNKNOWN) [Suspect]
     Indication: PRODUCT USED FOR UNKNOWN INDICATION
     Route: 042
  2. VIGAM [Suspect]
     Indication: CHRONIC INFLAMMATORY DEMYELINATING POLYRADICULONEUROPATHY
     Route: 042
     Dates: start: 20140520, end: 20140522
  3. CALCIUM CARBONATE AND COLECALCIFEROL [Concomitant]
  4. ALENDRONIC ACID [Concomitant]
  5. AZATHIOPRINE [Concomitant]
  6. LANSOPRAZOLE [Concomitant]
  7. PREDNISOLONE [Concomitant]
  8. BUDESONIDE AND FORMOTEROL [Concomitant]
  9. CYCLIZINE [Concomitant]

REACTIONS (2)
  - Cardiac failure acute [None]
  - Pulmonary embolism [None]
